FAERS Safety Report 22286246 (Version 3)
Quarter: 2023Q2

REPORT INFORMATION
  Report Type: Spontaneous
  Country: PT (occurrence: PT)
  Receive Date: 20230505
  Receipt Date: 20230519
  Transmission Date: 20230721
  Serious: Yes (Hospitalization, Other)
  Sender: FDA-Public Use
  Company Number: PT-MLMSERVICE-20230417-4228996-1

PATIENT
  Age: 3 Year
  Sex: Female

DRUGS (1)
  1. MONTELUKAST SODIUM [Suspect]
     Active Substance: MONTELUKAST SODIUM
     Indication: Wheezing
     Dosage: UNK
     Route: 065

REACTIONS (2)
  - Hallucination, visual [Recovered/Resolved]
  - Sleep disorder [Recovered/Resolved]
